FAERS Safety Report 23246292 (Version 1)
Quarter: 2023Q4

REPORT INFORMATION
  Report Type: Spontaneous
  Country: IN (occurrence: IN)
  Receive Date: 20231130
  Receipt Date: 20231130
  Transmission Date: 20240109
  Serious: Yes (Hospitalization, Other)
  Sender: FDA-Public Use
  Company Number: IN-PFIZER INC-PV202300089593

PATIENT
  Age: 73 Year
  Sex: Female

DRUGS (3)
  1. PALBOCICLIB [Suspect]
     Active Substance: PALBOCICLIB
     Dosage: 100 MG
  2. PALBOCICLIB [Suspect]
     Active Substance: PALBOCICLIB
     Dosage: 100 MG, CYCLIC, 1X/DAY(1-0 X 21/28)
     Route: 048
  3. LETROZOLE [Concomitant]
     Active Substance: LETROZOLE

REACTIONS (7)
  - Cataract [Unknown]
  - Haemoglobin decreased [Not Recovered/Not Resolved]
  - White blood cell count decreased [Not Recovered/Not Resolved]
  - Platelet count decreased [Not Recovered/Not Resolved]
  - Serum ferritin decreased [Unknown]
  - Blood iron abnormal [Unknown]
  - Free fatty acids increased [Unknown]

NARRATIVE: CASE EVENT DATE: 20230101
